FAERS Safety Report 19454829 (Version 1)
Quarter: 2021Q2

REPORT INFORMATION
  Report Type: Spontaneous
  Country: US (occurrence: US)
  Receive Date: 20210623
  Receipt Date: 20210623
  Transmission Date: 20210717
  Serious: Yes (Hospitalization, Other)
  Sender: FDA-Public Use
  Company Number: US-GLAXOSMITHKLINE-US2021131416

PATIENT
  Age: 63 Year
  Sex: Female

DRUGS (1)
  1. ZEJULA [Suspect]
     Active Substance: NIRAPARIB
     Indication: OVARIAN CANCER
     Dosage: 200 MG, QD
     Route: 048
     Dates: start: 20210512, end: 20210527

REACTIONS (9)
  - Abdominal pain [Unknown]
  - Ileus [Unknown]
  - Malignant neoplasm progression [Unknown]
  - Fatigue [Unknown]
  - Helicobacter infection [Unknown]
  - Gastritis [Unknown]
  - Catheter placement [Not Recovered/Not Resolved]
  - Abdominal discomfort [Unknown]
  - Ascites [Unknown]

NARRATIVE: CASE EVENT DATE: 20210606
